FAERS Safety Report 24382596 (Version 2)
Quarter: 2024Q4

REPORT INFORMATION
  Report Type: Report from Study
  Country: US (occurrence: US)
  Receive Date: 20241001
  Receipt Date: 20241202
  Transmission Date: 20250114
  Serious: Yes (Hospitalization, Other)
  Sender: NOVARTIS
  Company Number: US-002147023-NVSC2024US055469

PATIENT
  Sex: Female

DRUGS (1)
  1. KESIMPTA [Suspect]
     Active Substance: OFATUMUMAB
     Indication: Relapsing multiple sclerosis
     Dosage: UNK
     Route: 065
     Dates: start: 20240223

REACTIONS (11)
  - Pneumonia [Unknown]
  - Haemorrhage [Unknown]
  - Anxiety [Unknown]
  - Fatigue [Unknown]
  - COVID-19 [Unknown]
  - Uterine leiomyoma [Unknown]
  - Bronchitis [Recovering/Resolving]
  - Dyspnoea [Recovering/Resolving]
  - Device malfunction [Unknown]
  - Needle issue [Unknown]
  - Incision site pruritus [Unknown]
